FAERS Safety Report 5736242-2 (Version None)
Quarter: 2008Q2

REPORT INFORMATION
  Report Type: 
  Country: None (occurrence: None)
  Receive Date: 20080513
  Receipt Date: 20080501
  Transmission Date: 20081010
  Serious: Yes (Hospitalization)
  Sender: FDA-Public Use
  Company Number: CA-ELI_LILLY_AND_COMPANY-CA200805000576

PATIENT
  Sex: Female

DRUGS (4)
  1. HUMULIN N [Suspect]
     Dosage: 24 U, EACH MORNING
     Dates: start: 20030101
  2. HUMULIN N [Suspect]
     Dosage: 26 U, EACH EVENING
     Dates: start: 20030101
  3. HUMALOG [Suspect]
     Indication: DIABETES MELLITUS
     Dosage: 10 U, UNK
     Dates: start: 20030101
  4. HUMALOG [Suspect]
     Dosage: UNK, AS NEEDED
     Dates: start: 20030101

REACTIONS (2)
  - DIABETIC KETOACIDOSIS [None]
  - INCORRECT DOSE ADMINISTERED [None]
